FAERS Safety Report 4757034-7 (Version None)
Quarter: 2005Q3

REPORT INFORMATION
  Report Type: 
  Country: None (occurrence: None)
  Receive Date: 20050829
  Receipt Date: 20050829
  Transmission Date: 20060218
  Serious: Yes (Life-Threatening, Other)
  Sender: FDA-Public Use
  Company Number: None

PATIENT

DRUGS (2)
  1. PROVIGIL [Suspect]
     Indication: CHEMOTHERAPY
     Dosage: ONE TABLET ONCE PO
     Route: 048
     Dates: start: 20050813, end: 20050813
  2. PROVIGIL [Suspect]
     Indication: FATIGUE
     Dosage: ONE TABLET ONCE PO
     Route: 048
     Dates: start: 20050813, end: 20050813

REACTIONS (5)
  - ERYTHEMA [None]
  - IMPAIRED DRIVING ABILITY [None]
  - INFLAMMATION [None]
  - MEMORY IMPAIRMENT [None]
  - PRURITUS [None]
